FAERS Safety Report 22536727 (Version 1)
Quarter: 2023Q2

REPORT INFORMATION
  Report Type: Spontaneous
  Country: JP (occurrence: JP)
  Receive Date: 20230608
  Receipt Date: 20230608
  Transmission Date: 20230721
  Serious: Yes (Other)
  Sender: FDA-Public Use
  Company Number: JP-SUN PHARMACEUTICAL INDUSTRIES LTD-2023R1-393391

PATIENT
  Age: 33 Year
  Sex: Female

DRUGS (1)
  1. METHYLDOPA [Suspect]
     Active Substance: METHYLDOPA
     Indication: Hypertension
     Dosage: FDAI
     Route: 048

REACTIONS (4)
  - Eclampsia [Unknown]
  - Drug ineffective [Unknown]
  - Exposure during pregnancy [Unknown]
  - Live birth [Unknown]
